FAERS Safety Report 25304969 (Version 2)
Quarter: 2025Q3

REPORT INFORMATION
  Report Type: Spontaneous
  Country: BR (occurrence: BR)
  Receive Date: 20250513
  Receipt Date: 20250805
  Transmission Date: 20251021
  Serious: No
  Sender: ANI
  Company Number: BR-ANIPHARMA-022753

PATIENT
  Sex: Female
  Weight: 96 kg

DRUGS (6)
  1. FLUVOXAMINE MALEATE [Suspect]
     Active Substance: FLUVOXAMINE MALEATE
     Indication: Anxiety
     Route: 048
     Dates: start: 20250324
  2. FLUVOXAMINE MALEATE [Suspect]
     Active Substance: FLUVOXAMINE MALEATE
     Indication: Depression
     Route: 048
     Dates: start: 20250324
  3. FLUVOXAMINE MALEATE [Suspect]
     Active Substance: FLUVOXAMINE MALEATE
     Indication: Anxiety
     Route: 048
  4. FLUVOXAMINE MALEATE [Suspect]
     Active Substance: FLUVOXAMINE MALEATE
     Indication: Depression
     Route: 048
  5. FLUVOXAMINE MALEATE [Suspect]
     Active Substance: FLUVOXAMINE MALEATE
     Indication: Anxiety
     Route: 048
  6. FLUVOXAMINE MALEATE [Suspect]
     Active Substance: FLUVOXAMINE MALEATE
     Indication: Depression
     Route: 048

REACTIONS (7)
  - Throat irritation [Unknown]
  - Dyspepsia [Unknown]
  - Somnolence [Unknown]
  - Product colour issue [Unknown]
  - Poor quality product administered [Unknown]
  - Throat irritation [Unknown]
  - Product storage error [Unknown]

NARRATIVE: CASE EVENT DATE: 20250423
